FAERS Safety Report 9780381 (Version 1)
Quarter: 2013Q4

REPORT INFORMATION
  Report Type: Spontaneous
  Country: US (occurrence: US)
  Receive Date: 20131224
  Receipt Date: 20131224
  Transmission Date: 20140711
  Serious: Yes (Other)
  Sender: FDA-Public Use
  Company Number: US-BIOGENIDEC-2013BI120710

PATIENT
  Age: 60 Year
  Sex: Male

DRUGS (1)
  1. AVONEX [Suspect]
     Indication: MULTIPLE SCLEROSIS
     Route: 030
     Dates: start: 20050215

REACTIONS (6)
  - Cerebrovascular accident [Recovered/Resolved]
  - Vertigo [Recovered/Resolved]
  - Back pain [Recovered/Resolved]
  - Muscle spasms [Not Recovered/Not Resolved]
  - Multiple sclerosis relapse [Not Recovered/Not Resolved]
  - Pain in extremity [Recovered/Resolved]
